FAERS Safety Report 19399894 (Version 3)
Quarter: 2022Q1

REPORT INFORMATION
  Report Type: Other
  Country: CA (occurrence: CA)
  Receive Date: 20210610
  Receipt Date: 20220228
  Transmission Date: 20220423
  Serious: Yes (Other)
  Sender: FDA-Public Use
  Company Number: CA-APOTEX-2021AP013433

PATIENT
  Age: 58 Year
  Sex: Female

DRUGS (12)
  1. ERLOTINIB [Suspect]
     Active Substance: ERLOTINIB
     Indication: Non-small cell lung cancer metastatic
     Dosage: UNK
     Route: 065
  2. ERLOTINIB [Suspect]
     Active Substance: ERLOTINIB
     Indication: Non-small cell lung cancer
  3. GEMCITABINE [Suspect]
     Active Substance: GEMCITABINE
     Indication: Non-small cell lung cancer metastatic
     Dosage: UNK
     Route: 065
  4. GEFITINIB [Suspect]
     Active Substance: GEFITINIB
     Indication: Non-small cell lung cancer metastatic
     Dosage: UNK
     Route: 048
  5. PEMETREXED [Suspect]
     Active Substance: PEMETREXED
     Indication: Non-small cell lung cancer metastatic
     Dosage: UNK
     Route: 065
  6. CARBOPLATIN [Suspect]
     Active Substance: CARBOPLATIN
     Indication: Non-small cell lung cancer metastatic
     Dosage: UNK
     Route: 065
  7. OSIMERTINIB MESYLATE [Suspect]
     Active Substance: OSIMERTINIB MESYLATE
     Indication: Non-small cell lung cancer metastatic
     Dosage: UNK
     Route: 048
  8. OSIMERTINIB [Suspect]
     Active Substance: OSIMERTINIB
     Indication: Non-small cell lung cancer metastatic
     Dosage: UNK
     Route: 065
  9. VINORELBINE TARTRATE [Suspect]
     Active Substance: VINORELBINE TARTRATE
     Indication: Non-small cell lung cancer metastatic
     Dosage: UNK
     Route: 065
  10. TAXOTERE [Suspect]
     Active Substance: DOCETAXEL
     Indication: Non-small cell lung cancer metastatic
     Dosage: UNK
     Route: 065
  11. KEYTRUDA [Suspect]
     Active Substance: PEMBROLIZUMAB
     Indication: Non-small cell lung cancer metastatic
     Dosage: UNK
     Route: 065
  12. OSIMERTINIB MESYLATE [Suspect]
     Active Substance: OSIMERTINIB MESYLATE
     Indication: Non-small cell lung cancer metastatic
     Dosage: UNK
     Route: 048

REACTIONS (8)
  - Acquired gene mutation [Not Recovered/Not Resolved]
  - Neoplasm progression [Unknown]
  - Drug resistance [Not Recovered/Not Resolved]
  - Off label use [Not Recovered/Not Resolved]
  - Malignant neoplasm progression [Not Recovered/Not Resolved]
  - Pulmonary embolism [Not Recovered/Not Resolved]
  - Hepatitis [Not Recovered/Not Resolved]
  - Hepatotoxicity [Not Recovered/Not Resolved]
